FAERS Safety Report 4896925-3 (Version None)
Quarter: 2006Q1

REPORT INFORMATION
  Report Type: 
  Country: None (occurrence: None)
  Receive Date: 20060131
  Receipt Date: 20050812
  Transmission Date: 20060701
  Serious: Yes (Other)
  Sender: FDA-Public Use
  Company Number: DEWYE904512AUG05

PATIENT
  Sex: Female

DRUGS (10)
  1. ENBREL [Suspect]
     Indication: RHEUMATOID ARTHRITIS
     Route: 058
     Dates: start: 20020501, end: 20050201
  2. FUROSEMIDE [Concomitant]
  3. LANTAREL [Concomitant]
     Dosage: 15MG
     Dates: start: 20010301, end: 20040301
  4. LANTAREL [Concomitant]
     Dates: start: 20040901
  5. BECONASE [Concomitant]
  6. LEVOTHYROXINE SODIUM [Concomitant]
  7. DIGITOXIN TAB [Concomitant]
  8. PREDNISONE [Concomitant]
  9. PLAVIX [Concomitant]
  10. HYDROXYCHLOROQUINE SULFATE [Concomitant]

REACTIONS (1)
  - VASCULITIS [None]
